FAERS Safety Report 19355137 (Version 1)
Quarter: 2021Q2

REPORT INFORMATION
  Report Type: Spontaneous
  Country: US (occurrence: US)
  Receive Date: 20210601
  Receipt Date: 20210601
  Transmission Date: 20210717
  Serious: Yes (Hospitalization)
  Sender: FDA-Public Use
  Company Number: None

PATIENT
  Sex: Female

DRUGS (8)
  1. FISH OIL CON CAP 1000MG [Concomitant]
     Dates: start: 20210427
  2. CAPECITABINE. [Suspect]
     Active Substance: CAPECITABINE
     Indication: COLON CANCER
     Route: 048
     Dates: start: 20210427
  3. LEVOTHYROXIN TAB 75MCG [Concomitant]
     Dates: start: 20210427
  4. BIOTIN TAB 1000MCG [Concomitant]
     Dates: start: 20210427
  5. LOSARTAN POT TAB 50MG [Concomitant]
     Dates: start: 20210427
  6. CO Q?10 CAP 50MG [Concomitant]
     Dates: start: 20210427
  7. TRAVATAN Z DRO 0.004% [Concomitant]
     Dates: start: 20210427
  8. SIMVASTIN TAB 10MG [Concomitant]
     Dates: start: 20210427

REACTIONS (3)
  - Thrombosis [None]
  - Skin discolouration [None]
  - Taste disorder [None]
